FAERS Safety Report 10357460 (Version 1)
Quarter: 2014Q3

REPORT INFORMATION
  Report Type: Spontaneous
  Country: US (occurrence: US)
  Receive Date: 20140801
  Receipt Date: 20140801
  Transmission Date: 20150326
  Serious: No
  Sender: FDA-Public Use
  Company Number: US-ASTRAZENECA-2014SE53705

PATIENT
  Sex: Female

DRUGS (1)
  1. CRESTOR [Suspect]
     Active Substance: ROSUVASTATIN CALCIUM
     Route: 048
     Dates: start: 201407

REACTIONS (5)
  - Abdominal pain upper [Unknown]
  - Dysgeusia [Unknown]
  - Muscle spasms [Unknown]
  - Sleep disorder [Unknown]
  - Fatigue [Unknown]
